FAERS Safety Report 9638015 (Version 1)
Quarter: 2013Q4

REPORT INFORMATION
  Report Type: Spontaneous
  Country: US (occurrence: None)
  Receive Date: 20131021
  Receipt Date: 20131021
  Transmission Date: 20140711
  Serious: Yes (Other)
  Sender: FDA-Public Use
  Company Number: None

PATIENT
  Age: 61 Year
  Sex: Female

DRUGS (2)
  1. DIAZEPAM 5MG/ML HOSPIRA [Suspect]
     Dosage: 7, PRN
     Dates: start: 20130813
  2. DIAZEPAM 5MG/ML HOSPIRA [Suspect]
     Dosage: 7, PRN
     Dates: start: 20130813

REACTIONS (1)
  - Headache [None]
